FAERS Safety Report 14549419 (Version 1)
Quarter: 2018Q1

REPORT INFORMATION
  Report Type: Other
  Country: NO (occurrence: NO)
  Receive Date: 20180219
  Receipt Date: 20180219
  Transmission Date: 20180509
  Serious: Yes (Hospitalization, Other)
  Sender: FDA-Public Use
  Company Number: NO-MACLEODS PHARMACEUTICALS US LTD-MAC2018009882

PATIENT

DRUGS (12)
  1. SILDENAFIL FILM COATED TABLET [Suspect]
     Active Substance: SILDENAFIL
     Indication: PULMONARY HYPERTENSION
     Dosage: 60 MG, QD,20 MG, 3X/DAY
     Route: 048
     Dates: start: 20170801
  2. PLACEBO [Suspect]
     Active Substance: UNSPECIFIED INGREDIENT
     Indication: PULMONARY HYPERTENSION
     Dosage: 60 MG, QD, 20 MG, 3X/DAY, FILM-COATED TABLET
     Route: 048
     Dates: start: 20170801
  3. CARVEDILOL. [Concomitant]
     Active Substance: CARVEDILOL
     Indication: PRODUCT USED FOR UNKNOWN INDICATION
     Dosage: 12.5 MG, QD, 6.25 MG, 2X/DAY (MORNING AND EVENING)
     Route: 065
  4. CIPROXIN [Concomitant]
     Active Substance: CIPROFLOXACIN
     Indication: ARTHRITIS INFECTIVE
     Dosage: 1500 MG, QD, 750 MG, 2X/DAY
     Route: 048
     Dates: start: 20171216
  5. PARACET [Concomitant]
     Active Substance: ACETAMINOPHEN
     Indication: PRODUCT USED FOR UNKNOWN INDICATION
     Dosage: 1 GM, TID, AS NEEDED
     Route: 065
  6. INSPRA [Concomitant]
     Active Substance: EPLERENONE
     Indication: PRODUCT USED FOR UNKNOWN INDICATION
     Dosage: 25 MG, QD
     Route: 065
  7. METFORMIN HYDROCHLORIDE. [Concomitant]
     Active Substance: METFORMIN HYDROCHLORIDE
     Indication: PRODUCT USED FOR UNKNOWN INDICATION
     Dosage: 1000 MG QD UNK, 500 MG, 2X/DAY
     Route: 048
  8. RENITEC COMP [Concomitant]
     Active Substance: ENALAPRIL MALEATE\HYDROCHLOROTHIAZIDE
     Indication: PRODUCT USED FOR UNKNOWN INDICATION
     Dosage: 1 DF, QD, 20 MG/12.5 MG, 1X/DAY
     Route: 065
  9. CELEBRA [Concomitant]
     Active Substance: CELECOXIB
     Indication: PRODUCT USED FOR UNKNOWN INDICATION
     Dosage: 100 MG, UNK, 1-2 X/DAY AS NEEDED
     Route: 065
  10. AMARYL [Concomitant]
     Active Substance: GLIMEPIRIDE
     Indication: PRODUCT USED FOR UNKNOWN INDICATION
     Dosage: 4 MG, QD,1X/DAY
     Route: 065
  11. TRAMADOL HYDROCHLORIDE. [Concomitant]
     Active Substance: TRAMADOL HYDROCHLORIDE
     Indication: PRODUCT USED FOR UNKNOWN INDICATION
     Dosage: 50 MG, UP TO 3X/DAY AS NEEDED
     Route: 065
  12. ZYVOXID [Suspect]
     Active Substance: LINEZOLID
     Indication: ARTHRITIS INFECTIVE
     Dosage: 1200 MG, QD, 600 MG, 2X/DAY, FILM-COATED TABLET
     Route: 048
     Dates: start: 20171216, end: 20180118

REACTIONS (4)
  - Anaemia [Recovered/Resolved]
  - Nausea [Recovered/Resolved]
  - Platelet count decreased [Recovered/Resolved]
  - Decreased appetite [Recovered/Resolved]

NARRATIVE: CASE EVENT DATE: 20180118
